FAERS Safety Report 7703117-9 (Version None)
Quarter: 2011Q3

REPORT INFORMATION
  Report Type: 
  Country: None (occurrence: None)
  Receive Date: 20110816
  Receipt Date: 20110803
  Transmission Date: 20111222
  Serious: Yes (Hospitalization, Disabling, Other)
  Sender: FDA-Public Use
  Company Number: 20110319

PATIENT
  Age: 43 Year
  Sex: Male
  Weight: 152.4086 kg

DRUGS (8)
  1. POTASSIUM CHLORIDE [Concomitant]
  2. CELESTONE TAB [Suspect]
     Indication: DERMATITIS CONTACT
     Dosage: INTRAMUSCULAR
     Dates: start: 20110323, end: 20110323
  3. VIAGRA [Concomitant]
  4. ADIPEX [Concomitant]
  5. DEXAMETHASONE SODIUM PHOSPHATE [Suspect]
     Indication: DERMATITIS CONTACT
     Dosage: 8 MG X 2 DOSES
     Dates: start: 20110323, end: 20110401
  6. LASIX [Concomitant]
  7. LOSARTAN [Concomitant]
  8. DEXAMETHASONE SODIUM PHOSPHATE [Suspect]
     Indication: DERMATITIS CONTACT
     Dosage: 8 MG X 2 DOSES
     Dates: start: 20110323, end: 20110401

REACTIONS (22)
  - INFECTION [None]
  - DIVERTICULUM [None]
  - PULMONARY HYPERTENSION [None]
  - BLOOD PRESSURE INCREASED [None]
  - IMPAIRED WORK ABILITY [None]
  - BLOOD URINE PRESENT [None]
  - HYPERSENSITIVITY [None]
  - CHRONIC OBSTRUCTIVE PULMONARY DISEASE [None]
  - FATIGUE [None]
  - GAIT DISTURBANCE [None]
  - BACK PAIN [None]
  - DECREASED ACTIVITY [None]
  - MYOPATHY [None]
  - CARDIAC FAILURE CONGESTIVE [None]
  - HEART RATE INCREASED [None]
  - RASH [None]
  - WHITE BLOOD CELL COUNT INCREASED [None]
  - NEUTROPHIL COUNT INCREASED [None]
  - WOUND [None]
  - SWELLING [None]
  - CELLULITIS [None]
  - SKIN HYPOPIGMENTATION [None]
